FAERS Safety Report 9480580 (Version 1)
Quarter: 2013Q3

REPORT INFORMATION
  Report Type: Spontaneous
  Country: US (occurrence: US)
  Receive Date: 20130828
  Receipt Date: 20130828
  Transmission Date: 20140515
  Serious: Yes (Hospitalization, Other)
  Sender: FDA-Public Use
  Company Number: US-AMGEN-KDL109862

PATIENT
  Age: 49 Year
  Sex: Male

DRUGS (1)
  1. ENBREL [Suspect]
     Indication: RHEUMATOID ARTHRITIS
     Dosage: 75 MG, QWK
     Route: 058
     Dates: start: 19990110

REACTIONS (3)
  - Pericarditis [Unknown]
  - Interstitial lung disease [Unknown]
  - Drug ineffective [Unknown]
